FAERS Safety Report 9495328 (Version 2)
Quarter: 2013Q4

REPORT INFORMATION
  Report Type: Spontaneous
  Country: CA (occurrence: CA)
  Receive Date: 20130903
  Receipt Date: 20131003
  Transmission Date: 20140711
  Serious: Yes (Hospitalization)
  Sender: FDA-Public Use
  Company Number: CA-GLAXOSMITHKLINE-A1039051A

PATIENT
  Sex: Female

DRUGS (1)
  1. TYKERB [Suspect]
     Indication: BREAST CANCER METASTATIC
     Dosage: 1250MG UNKNOWN
     Route: 065

REACTIONS (11)
  - Hypotension [Unknown]
  - Diarrhoea [Unknown]
  - Weight decreased [Unknown]
  - Erythema [Unknown]
  - Skin plaque [Unknown]
  - Palmar-plantar erythrodysaesthesia syndrome [Unknown]
  - Dry skin [Unknown]
  - Dry mouth [Unknown]
  - Vomiting [Unknown]
  - Polydipsia [Unknown]
  - Dehydration [Unknown]
